FAERS Safety Report 9244331 (Version 1)
Quarter: 2013Q1

REPORT INFORMATION
  Report Type: Spontaneous
  Country: US (occurrence: None)
  Receive Date: 20121130
  Receipt Date: 20121130
  Transmission Date: 20140127
  Serious: Yes (Other)
  Sender: FDA-Public Use
  Company Number: US201207002042

PATIENT
  Age: 58 Year
  Sex: Female

DRUGS (2)
  1. BYDUREON [Suspect]
     Indication: TYPE 2 DIABETES MELLITUS
     Route: 058
  2. METFORMIN (METFORMIN) [Concomitant]

REACTIONS (4)
  - Generalised erythema [None]
  - Pruritus generalised [None]
  - Injection site haemorrhage [None]
  - Hypersensitivity [None]
